FAERS Safety Report 18578399 (Version 10)
Quarter: 2021Q3

REPORT INFORMATION
  Report Type: Spontaneous
  Country: GB (occurrence: GB)
  Receive Date: 20201204
  Receipt Date: 20210804
  Transmission Date: 20211014
  Serious: Yes (Hospitalization, Other)
  Sender: FDA-Public Use
  Company Number: GB-ACCORD-209802

PATIENT
  Age: 68 Year
  Sex: Male

DRUGS (23)
  1. CYCLOPHOSPHAMIDE/CYCLOPHOSPHAMIDE MONOHYDRATE [Concomitant]
     Active Substance: CYCLOPHOSPHAMIDE
     Dosage: ONCE IN THE MORNING FOR A FURTHER DAY THEN STOP
  2. FLUCONAZOLE. [Concomitant]
     Active Substance: FLUCONAZOLE
     Dosage: IN THE MORNING
  3. LANSOPRAZOLE. [Concomitant]
     Active Substance: LANSOPRAZOLE
     Dosage: IN THE MORNING
  4. NOVOMIX [Concomitant]
     Active Substance: INSULIN ASPART
     Dosage: 60 IU, QD (32 UNITS IN THE MORNING AND 28 UNITS AT TEATIME)
  5. NOVOMIX [Concomitant]
     Active Substance: INSULIN ASPART
     Dosage: 32 UNITS IN THE MORNING AND 28 UNITS AT TEATIME
  6. BISOPROLOL [Concomitant]
     Active Substance: BISOPROLOL
     Indication: TRANSIENT ISCHAEMIC ATTACK
     Dosage: IN THE MORNING
  7. CLOBETASONE/CLOBETASONE BUTYRATE [Concomitant]
  8. APIXABAN [Suspect]
     Active Substance: APIXABAN
     Indication: PULMONARY EMBOLISM
     Dosage: 10 MILLIGRAM PER DAY
  9. CLOPIDOGREL [Suspect]
     Active Substance: CLOPIDOGREL BISULFATE
     Indication: TRANSIENT ISCHAEMIC ATTACK
  10. CYCLOPHOSPHAMIDE/CYCLOPHOSPHAMIDE MONOHYDRATE [Concomitant]
     Active Substance: CYCLOPHOSPHAMIDE
     Dosage: 100 MG, QD (ONCE IN THE MORNING FOR A FURTHER DAY THEN STOP)
  11. PREDNISOLONE. [Suspect]
     Active Substance: PREDNISOLONE
     Indication: VASCULITIS
     Dosage: IN THE MORNING, WITH PLANNED WEANING REGIME
  12. APIXABAN [Suspect]
     Active Substance: APIXABAN
     Indication: PULMONARY EMBOLISM
     Dosage: 10 MILLIGRAM PER DAY
  13. ACICLOVIR [Concomitant]
     Active Substance: ACYCLOVIR
     Dosage: IN THE MORNING
  14. ADCAL?D3 [Concomitant]
     Active Substance: CALCIUM CARBONATE\CHOLECALCIFEROL
     Dosage: 2 DF, QD
  15. CLOPIDOGREL [Suspect]
     Active Substance: CLOPIDOGREL BISULFATE
     Indication: TRANSIENT ISCHAEMIC ATTACK
     Dosage: IN THE MORNING
  16. DARBEPOETIN ALFA [Concomitant]
     Active Substance: DARBEPOETIN ALFA
     Dosage: ON TUESDAYS
     Route: 058
  17. ADCAL?D3 [Concomitant]
     Active Substance: CALCIUM CARBONATE\CHOLECALCIFEROL
  18. COTRIMOXAZOLE [Concomitant]
     Active Substance: SULFAMETHOXAZOLE\TRIMETHOPRIM
     Dosage: BID, 80MG/400MG, ON MONDAY, WEDNESDAY AND FRIDAY
     Route: 048
  19. COTRIMOXAZOLE [Concomitant]
     Active Substance: SULFAMETHOXAZOLE\TRIMETHOPRIM
     Dosage: 80MG/400MG, ON MONDAY, WEDNESDAY AND FRIDAY
     Route: 048
  20. FLUCONAZOLE. [Concomitant]
     Active Substance: FLUCONAZOLE
     Dosage: 50 MG, QD (IN THE MORNING)
  21. COTRIMOXAZOLE [Concomitant]
     Active Substance: SULFAMETHOXAZOLE\TRIMETHOPRIM
     Dosage: 480 MG, QOD (80MG/400MG, ON MONDAY, WEDNESDAY AND FRIDAY)
     Route: 048
  22. ACICLOVIR [Concomitant]
     Active Substance: ACYCLOVIR
     Dosage: 400 MILLIGRAM, QD
  23. LANSOPRAZOLE. [Concomitant]
     Active Substance: LANSOPRAZOLE
     Dosage: 30 MG, QD (IN THE MORNING)

REACTIONS (8)
  - Transient ischaemic attack [Unknown]
  - Upper gastrointestinal haemorrhage [Unknown]
  - Duodenal ulcer haemorrhage [Unknown]
  - Circulatory collapse [Unknown]
  - Drug ineffective [Unknown]
  - Pulmonary embolism [Unknown]
  - Melaena [Unknown]
  - Amaurosis fugax [Unknown]
